FAERS Safety Report 4307363-6 (Version None)
Quarter: 2004Q1

REPORT INFORMATION
  Report Type: 
  Country: None (occurrence: None)
  Receive Date: 20040226
  Receipt Date: 20040212
  Transmission Date: 20041129
  Serious: Yes (Hospitalization, Other)
  Sender: FDA-Public Use
  Company Number: 2003118238

PATIENT
  Age: 43 Year
  Sex: Male
  Weight: 83.9154 kg

DRUGS (4)
  1. ZOLOFT [Suspect]
     Dosage: 100 MG ORAL
     Route: 048
     Dates: start: 20030901
  2. TRAZODONE HCL [Suspect]
     Indication: INSOMNIA
     Dates: start: 20020901, end: 20031106
  3. ALPRAZOLAM [Suspect]
     Indication: ANXIETY
     Dosage: 1 MG (DAILY), ORAL
     Route: 048
     Dates: start: 20031106
  4. CLONAZEPAM [Concomitant]

REACTIONS (8)
  - AGITATION [None]
  - ANOREXIA [None]
  - DRUG INTERACTION [None]
  - DYSPHORIA [None]
  - EXERCISE LACK OF [None]
  - INSOMNIA [None]
  - MENTAL DISORDER [None]
  - TENSION [None]
